FAERS Safety Report 6958550-X (Version None)
Quarter: 2010Q3

REPORT INFORMATION
  Report Type: 
  Country: None (occurrence: None)
  Receive Date: 20100831
  Receipt Date: 20100824
  Transmission Date: 20110219
  Serious: Yes (Other)
  Sender: FDA-Public Use
  Company Number: US-MERCK-1008USA00665

PATIENT
  Age: 44 Year
  Sex: Male

DRUGS (10)
  1. IVEMEND [Suspect]
     Indication: PROPHYLAXIS OF NAUSEA AND VOMITING
     Route: 042
     Dates: start: 20100721
  2. IVEMEND [Suspect]
     Route: 042
     Dates: start: 20100804
  3. CISPLATIN [Concomitant]
     Route: 065
  4. CAMPTOSAR [Concomitant]
     Route: 065
  5. VITAMIN D (UNSPECIFIED) [Concomitant]
     Route: 065
  6. FENTANYL [Concomitant]
     Route: 065
  7. ASCORBIC ACID [Concomitant]
     Route: 065
  8. PRILOSEC [Concomitant]
     Route: 065
  9. COMPAZINE [Concomitant]
     Route: 065
  10. ATIVAN [Concomitant]
     Route: 065

REACTIONS (3)
  - BODY TEMPERATURE DECREASED [None]
  - DYSTONIA [None]
  - HYPERTENSION [None]
